FAERS Safety Report 7201382-8 (Version None)
Quarter: 2010Q4

REPORT INFORMATION
  Report Type: 
  Country: None (occurrence: None)
  Receive Date: 20101229
  Receipt Date: 20101223
  Transmission Date: 20110411
  Serious: Yes (Disabling)
  Sender: FDA-Public Use
  Company Number: FR-SANOFI-AVENTIS-2010SA077327

PATIENT
  Age: 54 Year
  Sex: Female

DRUGS (3)
  1. TAXOTERE [Suspect]
     Indication: BREAST CANCER
     Dates: start: 20090201, end: 20090401
  2. AVASTIN [Suspect]
     Indication: BREAST CANCER
     Dates: start: 20081101
  3. TRASTUZUMAB [Suspect]
     Indication: BREAST CANCER
     Dates: start: 20090201, end: 20100201

REACTIONS (2)
  - EPISTAXIS [None]
  - NASAL SEPTUM PERFORATION [None]
